FAERS Safety Report 5213512-8 (Version None)
Quarter: 2007Q1

REPORT INFORMATION
  Report Type: 
  Country: None (occurrence: None)
  Receive Date: 20070119
  Receipt Date: 20061103
  Transmission Date: 20070707
  Serious: Yes (Hospitalization, Disabling)
  Sender: FDA-Public Use
  Company Number: US-ROCHE-464171

PATIENT
  Age: 48 Year
  Sex: Male
  Weight: 111.6 kg

DRUGS (7)
  1. PEGASYS [Suspect]
     Indication: HEPATITIS C
     Route: 058
     Dates: start: 20060807
  2. RIBASPHERE [Suspect]
     Indication: HEPATITIS C
     Route: 048
     Dates: start: 20060807
  3. CELEXA [Concomitant]
     Indication: DEPRESSION
     Route: 048
  4. TRAZODONE HCL [Concomitant]
     Indication: INSOMNIA
     Route: 048
  5. XANAX [Concomitant]
     Indication: INSOMNIA
     Route: 048
  6. VALIUM [Concomitant]
     Indication: INSOMNIA
     Dosage: DOSAGE REGIMEN REPORTED AS 5 MG ON THREE SEPARATE DAYS.
     Route: 048
     Dates: start: 20060915
  7. REMERON [Concomitant]
     Indication: DEPRESSION
     Route: 048
     Dates: start: 20060901

REACTIONS (4)
  - BLOOD ALCOHOL INCREASED [None]
  - CONVULSION [None]
  - NO THERAPEUTIC RESPONSE [None]
  - TREMOR [None]
